FAERS Safety Report 6255691-X (Version None)
Quarter: 2009Q3

REPORT INFORMATION
  Report Type: 
  Country: None (occurrence: None)
  Receive Date: 20090701
  Receipt Date: 20090622
  Transmission Date: 20100115
  Serious: Yes (Congenital Anomaly, Other)
  Sender: FDA-Public Use
  Company Number: GXKR2009SI07256

PATIENT
  Sex: Female

DRUGS (3)
  1. IRBESARTAN [Suspect]
  2. METHYLDOPA [Suspect]
     Dosage: SEE IMAGE
  3. ACETYLSALICYLATE LYSINE (ACETYLSALICYLATE LYSINE) [Suspect]
     Dosage: MATERNAL DOSE: 100MG/DAY

REACTIONS (13)
  - APGAR SCORE LOW [None]
  - CAESAREAN SECTION [None]
  - CEREBRAL CYST [None]
  - CEREBRAL HAEMORRHAGE NEONATAL [None]
  - FOETAL CARDIAC DISORDER [None]
  - GENERAL PHYSICAL HEALTH DETERIORATION [None]
  - INFANTILE APNOEIC ATTACK [None]
  - MATERNAL DRUGS AFFECTING FOETUS [None]
  - NEONATAL DISORDER [None]
  - NEONATAL RESPIRATORY DISTRESS SYNDROME [None]
  - OLIGOHYDRAMNIOS [None]
  - PNEUMOTHORAX [None]
  - PREMATURE BABY [None]
